FAERS Safety Report 7072921-5 (Version None)
Quarter: 2010Q4

REPORT INFORMATION
  Report Type: 
  Country: None (occurrence: None)
  Receive Date: 20101029
  Receipt Date: 20100331
  Transmission Date: 20110411
  Serious: No
  Sender: FDA-Public Use
  Company Number: A0852901A

PATIENT
  Age: 58 Year
  Sex: Female

DRUGS (5)
  1. ADVAIR DISKUS 100/50 [Suspect]
     Indication: ASTHMA
     Dosage: 1PUFF PER DAY
     Route: 055
     Dates: start: 20080101
  2. OMEPRAZOLE [Concomitant]
  3. BENAZEPRIL HYDROCHLORIDE [Concomitant]
  4. HYDROCHLOROTHIAZIDE [Concomitant]
  5. SYNTHROID [Concomitant]

REACTIONS (4)
  - CANDIDIASIS [None]
  - MOUTH INJURY [None]
  - RETCHING [None]
  - SWELLING [None]
